FAERS Safety Report 9116290 (Version 2)
Quarter: 2014Q1

REPORT INFORMATION
  Report Type: Spontaneous
  Country: US (occurrence: US)
  Receive Date: 20130225
  Receipt Date: 20140224
  Transmission Date: 20141002
  Serious: Yes (Disabling, Other)
  Sender: FDA-Public Use
  Company Number: US-PFIZER INC-2013019074

PATIENT
  Age: 50 Year
  Sex: Female
  Weight: 73.47 kg

DRUGS (9)
  1. CHANTIX [Suspect]
     Indication: SMOKING CESSATION THERAPY
     Dosage: UNK
  2. CHANTIX [Suspect]
     Dosage: UNK
     Dates: start: 2007, end: 2007
  3. CHANTIX [Suspect]
     Dosage: UNK
     Dates: start: 2007, end: 2007
  4. CHANTIX [Suspect]
     Dosage: UNK
     Dates: start: 2007, end: 2007
  5. VIIBRYD [Concomitant]
     Indication: DEPRESSION
     Dosage: 40 MG, DAILY
  6. VIIBRYD [Concomitant]
     Indication: ANXIETY
  7. CLONAZEPAM [Concomitant]
     Indication: ANXIETY
     Dosage: 1 MG, 5X/DAY
  8. CLONAZEPAM [Concomitant]
     Indication: PANIC ATTACK
  9. MORPHINE [Concomitant]
     Indication: MIGRAINE
     Dosage: UNK

REACTIONS (17)
  - Suicidal ideation [Recovered/Resolved]
  - Overdose [Unknown]
  - Personality disorder [Unknown]
  - Spinal disorder [Unknown]
  - Memory impairment [Unknown]
  - Impaired driving ability [Unknown]
  - Insomnia [Unknown]
  - Nightmare [Unknown]
  - Abnormal dreams [Unknown]
  - Asthenia [Unknown]
  - Nervousness [Unknown]
  - Feeling abnormal [Unknown]
  - General physical health deterioration [Unknown]
  - Anxiety [Unknown]
  - Depression [Unknown]
  - Mental disorder [Unknown]
  - Activities of daily living impaired [Unknown]
